FAERS Safety Report 9009480 (Version 2)
Quarter: 2013Q1

REPORT INFORMATION
  Report Type: Spontaneous
  Country: US (occurrence: US)
  Receive Date: 20130110
  Receipt Date: 20130208
  Transmission Date: 20140127
  Serious: No
  Sender: FDA-Public Use
  Company Number: US-PFIZER INC-2013009324

PATIENT
  Age: 64 Year
  Sex: Male

DRUGS (1)
  1. SUTENT [Suspect]
     Indication: METASTATIC RENAL CELL CARCINOMA
     Dosage: 50 MG, 1X/DAY
     Route: 048
     Dates: start: 201204

REACTIONS (6)
  - Rash macular [Unknown]
  - Purpura [Unknown]
  - Dysgeusia [Not Recovered/Not Resolved]
  - Eyelid oedema [Unknown]
  - Dry mouth [Unknown]
  - Periorbital oedema [Not Recovered/Not Resolved]
